FAERS Safety Report 17996011 (Version 5)
Quarter: 2020Q4

REPORT INFORMATION
  Report Type: Report from Study
  Country: FR (occurrence: FR)
  Receive Date: 20200708
  Receipt Date: 20201214
  Transmission Date: 20210113
  Serious: Yes (Hospitalization)
  Sender: FDA-Public Use
  Company Number: FR-INTERCEPT-CT2020001368

PATIENT
  Age: 60 Year
  Sex: Female
  Weight: 81 kg

DRUGS (9)
  1. COAPROVEL [Suspect]
     Active Substance: HYDROCHLOROTHIAZIDE\IRBESARTAN
     Indication: HYPERTENSION
     Dosage: 150/12.5 MG, QD
     Route: 048
     Dates: start: 2015, end: 20200701
  2. AERIUS [Concomitant]
     Indication: PRURITUS
     Dosage: 5 MG, QD
     Route: 048
     Dates: start: 20200214
  3. DIPROSONE [Concomitant]
     Active Substance: BETAMETHASONE DIPROPIONATE
     Indication: LUPUS-LIKE SYNDROME
     Dosage: 1 APPLICATION, BID
     Route: 061
     Dates: start: 20200619, end: 20200625
  4. OBETICHOLIC ACID [Suspect]
     Active Substance: OBETICHOLIC ACID
     Indication: NON-ALCOHOLIC STEATOHEPATITIS
     Dosage: 10 MG, QD
     Route: 048
     Dates: start: 20200206, end: 20200616
  5. CHOLURSO [Concomitant]
     Active Substance: URSODIOL
     Indication: NON-ALCOHOLIC STEATOHEPATITIS
     Dosage: 500 MG, BID
     Route: 048
     Dates: start: 201610
  6. QUESTRAN [Concomitant]
     Active Substance: CHOLESTYRAMINE
     Indication: PRURITUS
     Dosage: 1-3 SACHET, PRN
     Route: 048
     Dates: start: 20200214, end: 20200618
  7. DEXERYL [Concomitant]
     Indication: LUPUS-LIKE SYNDROME
     Dosage: 1 APPLICATION, QD
     Route: 061
     Dates: start: 20200619
  8. ZANIDIP [Concomitant]
     Active Substance: LERCANIDIPINE HYDROCHLORIDE
     Indication: HYPERTENSION
     Dosage: 10 MG, QD
     Route: 048
     Dates: start: 2016
  9. ESOMEPRAZOLE. [Concomitant]
     Active Substance: ESOMEPRAZOLE MAGNESIUM
     Indication: ABDOMINAL PAIN UPPER
     Dosage: 40 MG, QD
     Route: 048
     Dates: start: 20200303

REACTIONS (1)
  - Lupus-like syndrome [Recovered/Resolved]

NARRATIVE: CASE EVENT DATE: 20200625
